FAERS Safety Report 8882158 (Version 1)
Quarter: 2012Q4

REPORT INFORMATION
  Report Type: 
  Country: US (occurrence: US)
  Receive Date: 20121102
  Receipt Date: 20121102
  Transmission Date: 20130627
  Serious: Yes (Other)
  Sender: FDA-Public Use
  Company Number: US-ELI_LILLY_AND_COMPANY-US201203003464

PATIENT
  Age: 60 Year
  Sex: Female
  Weight: 67.12 kg

DRUGS (11)
  1. FORTEO [Suspect]
     Indication: OSTEOPOROSIS
     Dosage: 20 ug, qd
     Route: 065
     Dates: start: 20120215
  2. FORTEO [Suspect]
     Dosage: 20 ug, qd
     Route: 065
     Dates: end: 20120323
  3. BUDEPRION [Concomitant]
     Dosage: 300 mg, qd
     Route: 048
  4. FLUTICASONE PROPIONATE [Concomitant]
     Dosage: UNK, prn
  5. TUMS [Concomitant]
     Dosage: UNK
  6. FLINTSTONES [Concomitant]
     Dosage: UNK
  7. VITAMIN D [Concomitant]
     Dosage: 1 - 2 daily
  8. HYDROXYZINE HCL [Concomitant]
     Indication: PRURITUS
     Dosage: 2 tabs q 8 hrs
  9. CALAMINE LOTION [Concomitant]
     Dosage: UNK, bid
  10. RESTASIS [Concomitant]
     Dosage: 0.05 %, UNK
  11. PATANOL [Concomitant]
     Dosage: 0.1 %, UNK

REACTIONS (7)
  - Rash maculo-papular [Recovered/Resolved]
  - Basal cell carcinoma [Unknown]
  - Muscle spasms [Unknown]
  - Drug dose omission [Unknown]
  - Cellulitis [Unknown]
  - Foot fracture [Unknown]
  - Melanocytic naevus [Unknown]
